FAERS Safety Report 23059007 (Version 2)
Quarter: 2023Q4

REPORT INFORMATION
  Report Type: Spontaneous
  Country: US (occurrence: US)
  Receive Date: 20231012
  Receipt Date: 20231023
  Transmission Date: 20240109
  Serious: Yes (Life-Threatening, Hospitalization)
  Sender: FDA-Public Use
  Company Number: US-TEVA-2023-US-2933054

PATIENT
  Age: 61 Year
  Sex: Female

DRUGS (2)
  1. DIVALPROEX SODIUM [Suspect]
     Active Substance: DIVALPROEX SODIUM
     Indication: Intentional overdose
     Dosage: ADMINISTERED 200 TABLETS OF EXTENDED-RELEASE (ER) VALPROATE-SEMISODIUM, WITH EACH TABLET CONTAINI...
     Route: 048
  2. DIVALPROEX SODIUM [Suspect]
     Active Substance: DIVALPROEX SODIUM
     Indication: Suicide attempt

REACTIONS (4)
  - Hyperammonaemia [Recovering/Resolving]
  - Bradypnoea [Unknown]
  - Hypotension [Unknown]
  - Intentional overdose [Unknown]
